FAERS Safety Report 7931709-0 (Version None)
Quarter: 2011Q4

REPORT INFORMATION
  Report Type: 
  Country: None (occurrence: None)
  Receive Date: 20111121
  Receipt Date: 20111111
  Transmission Date: 20120403
  Serious: Yes (Hospitalization, Other)
  Sender: FDA-Public Use
  Company Number: PHHY2011DE94539

PATIENT
  Sex: Female

DRUGS (3)
  1. QUETIAPIN RETARD [Concomitant]
     Indication: SCHIZOPHRENIA
     Dosage: 100 MG, DAILY
     Route: 048
     Dates: start: 20110701
  2. CLOZAPINE [Suspect]
     Indication: SCHIZOPHRENIA
     Dosage: 200 MG, DAILY
     Dates: start: 20110915
  3. CYMBALTA [Concomitant]
     Dosage: 60 MG, DAILY
     Route: 048
     Dates: start: 20110817

REACTIONS (2)
  - NEUTROPHIL TOXIC GRANULATION PRESENT [None]
  - EOSINOPHILIA [None]
